FAERS Safety Report 26082262 (Version 1)
Quarter: 2025Q4

REPORT INFORMATION
  Report Type: Spontaneous
  Country: CN (occurrence: CN)
  Receive Date: 20251124
  Receipt Date: 20251124
  Transmission Date: 20260118
  Serious: Yes (Other)
  Sender: ALEXION PHARMACEUTICALS
  Company Number: CN-ASTRAZENECA-202511CHN014886CN

PATIENT
  Age: 71 Year
  Sex: Female
  Weight: 69 kg

DRUGS (1)
  1. BRILINTA [Suspect]
     Active Substance: TICAGRELOR
     Indication: Coronary artery disease
     Dosage: 90.000000 MILLIGRAM,2 TIMES 1 DAY
     Dates: start: 20251106, end: 20251110

REACTIONS (2)
  - Chest discomfort [Recovering/Resolving]
  - Breath holding [Recovering/Resolving]

NARRATIVE: CASE EVENT DATE: 20251110
